FAERS Safety Report 16239699 (Version 1)
Quarter: 2019Q2

REPORT INFORMATION
  Report Type: Spontaneous
  Country: US (occurrence: US)
  Receive Date: 20190425
  Receipt Date: 20190425
  Transmission Date: 20190711
  Serious: No
  Sender: FDA-Public Use
  Company Number: US-GLAXOSMITHKLINE-US2019068705

PATIENT
  Age: 67 Year
  Sex: Male

DRUGS (1)
  1. FLONASE [Suspect]
     Active Substance: FLUTICASONE PROPIONATE
     Indication: SINUS DISORDER
     Dosage: UNK, ( COUPLE TIMES I DID USE IT ONCE, TWICE A DAY)
     Route: 045

REACTIONS (4)
  - Inappropriate schedule of product administration [Unknown]
  - Dyspnoea [Recovering/Resolving]
  - Hypoacusis [Recovering/Resolving]
  - Product use in unapproved indication [Unknown]
